FAERS Safety Report 6975722-9 (Version None)
Quarter: 2010Q3

REPORT INFORMATION
  Report Type: 
  Country: None (occurrence: None)
  Receive Date: 20100910
  Receipt Date: 20090331
  Transmission Date: 20110219
  Serious: No
  Sender: FDA-Public Use
  Company Number: US-WYE-H08795809

PATIENT
  Sex: Female

DRUGS (2)
  1. PRISTIQ [Suspect]
     Route: 048
  2. EFFEXOR XR [Suspect]
     Dosage: ^225 MG OR MORE^
     Route: 048

REACTIONS (3)
  - DIZZINESS [None]
  - MALAISE [None]
  - NAUSEA [None]
